FAERS Safety Report 15244081 (Version 2)
Quarter: 2023Q1

REPORT INFORMATION
  Report Type: Spontaneous
  Country: IT (occurrence: IT)
  Receive Date: 20180806
  Receipt Date: 20230118
  Transmission Date: 20230417
  Serious: Yes (Other)
  Sender: FDA-Public Use
  Company Number: IT-MLMSERVICE-20180723-1295327-1

PATIENT
  Age: 56 Year
  Sex: Male

DRUGS (4)
  1. EPIRUBICIN [Suspect]
     Active Substance: EPIRUBICIN
     Indication: Hepatocellular carcinoma
     Route: 013
  2. EPIRUBICIN [Suspect]
     Active Substance: EPIRUBICIN
     Indication: Hepatocellular carcinoma
     Dosage: INFUSED THROUGH A SEGMENTAL ARTERY
  3. EPIRUBICIN [Suspect]
     Active Substance: EPIRUBICIN
     Route: 065
  4. ETHIODIZED OIL [Concomitant]
     Active Substance: ETHIODIZED OIL
     Indication: Hepatocellular carcinoma
     Dosage: UNKNOWN
     Route: 065

REACTIONS (8)
  - Infusion site extravasation [Recovered/Resolved]
  - Alopecia [Unknown]
  - Hepatic enzyme increased [Recovered/Resolved]
  - Neutropenia [Recovered/Resolved]
  - Livedo reticularis [Recovered/Resolved]
  - Thrombocytopenia [Recovered/Resolved]
  - Pleural effusion [Recovering/Resolving]
  - Anaemia [Recovered/Resolved]
